FAERS Safety Report 9672475 (Version 3)
Quarter: 2014Q1

REPORT INFORMATION
  Report Type: Spontaneous
  Country: PT (occurrence: PT)
  Receive Date: 20131106
  Receipt Date: 20140304
  Transmission Date: 20141002
  Serious: Yes (Hospitalization, Disabling, Other)
  Sender: FDA-Public Use
  Company Number: PT-GILEAD-2013-0086884

PATIENT
  Age: 9 Year
  Sex: Male

DRUGS (8)
  1. TENOFOVIR DISOPROXIL FUMARATE [Suspect]
     Indication: HIV INFECTION
     Dosage: 200 MG, QD
     Route: 048
     Dates: start: 20130806, end: 20131101
  2. DARUNAVIR [Concomitant]
     Indication: HIV INFECTION
     Dosage: UNK
     Dates: start: 20130806
  3. RALTEGRAVIR [Concomitant]
     Indication: HIV INFECTION
     Dosage: UNK
     Dates: start: 20130806
  4. NORVIR [Concomitant]
     Indication: HIV INFECTION
     Dosage: UNK
     Dates: start: 20130806
  5. SULFAMETOXAZOL + TRIMETOPRIMA [Concomitant]
     Indication: PROPHYLAXIS
     Dosage: UNK
     Dates: start: 20130806
  6. AZITHROMYCIN [Concomitant]
     Indication: PROPHYLAXIS
     Dosage: UNK
     Dates: start: 20130806
  7. VALPROIC ACID [Concomitant]
     Indication: CHOREOATHETOSIS
     Dosage: UNK
     Dates: start: 20130806
  8. TIAPRIDE                           /00435702/ [Concomitant]
     Indication: CHOREOATHETOSIS
     Dosage: UNK
     Dates: start: 20130806

REACTIONS (5)
  - Retinopathy [Recovering/Resolving]
  - Retinal degeneration [Recovering/Resolving]
  - Optic atrophy [Recovering/Resolving]
  - Blindness [Recovering/Resolving]
  - Visual acuity reduced [Recovering/Resolving]
